FAERS Safety Report 9366506 (Version 1)
Quarter: 2013Q2

REPORT INFORMATION
  Report Type: Spontaneous
  Country: CN (occurrence: CN)
  Receive Date: 20130625
  Receipt Date: 20130625
  Transmission Date: 20140414
  Serious: Yes (Hospitalization)
  Sender: FDA-Public Use
  Company Number: CN-MYLANLABS-2013S1013252

PATIENT
  Age: 27 Year
  Sex: Male

DRUGS (4)
  1. QUETIAPINE [Suspect]
     Indication: MAJOR DEPRESSION
     Dosage: 100 MG/DAY, INCREASED TO 200 MG/DAY
     Route: 065
     Dates: start: 200412, end: 200802
  2. QUETIAPINE [Suspect]
     Indication: MAJOR DEPRESSION
     Dosage: 200 MG/DAY
     Route: 065
     Dates: start: 200802
  3. OLANZAPINE [Suspect]
     Indication: MAJOR DEPRESSION
     Dosage: 10 MG/DAY, INCREASED TO 20 MG/DAY
     Route: 065
  4. OLANZAPINE [Suspect]
     Indication: MAJOR DEPRESSION
     Dosage: 20 MG/DAY
     Route: 065

REACTIONS (2)
  - Oedema peripheral [Recovered/Resolved]
  - Tubulointerstitial nephritis [Unknown]
